FAERS Safety Report 8595689-X (Version None)
Quarter: 2012Q3

REPORT INFORMATION
  Report Type: 
  Country: None (occurrence: None)
  Receive Date: 20120815
  Receipt Date: 20120810
  Transmission Date: 20120928
  Serious: Yes (Hospitalization)
  Sender: FDA-Public Use
  Company Number: NL-SHIRE-SPV1-2012-00740

PATIENT
  Sex: Male
  Weight: 2.68 kg

DRUGS (4)
  1. METAMUCIL                          /00091301/ [Concomitant]
     Indication: DIARRHOEA
     Dosage: UNK, UNKNOWN
     Route: 064
     Dates: start: 20120501, end: 20120715
  2. PENTASA [Concomitant]
     Indication: COLITIS ULCERATIVE
     Dosage: 1 G, UNKNOWN
     Route: 064
     Dates: start: 20120501, end: 20120715
  3. FOLIUMZUUR [Concomitant]
     Indication: PREGNANCY
     Dosage: 0.5 MG, UNKNOWN
     Route: 064
     Dates: end: 20120715
  4. MESALAMINE [Suspect]
     Indication: COLITIS ULCERATIVE
     Dosage: UNK UNK, 1X/DAY:QD
     Route: 064
     Dates: end: 20120715

REACTIONS (1)
  - MOANING [None]
